FAERS Safety Report 4744257-6 (Version None)
Quarter: 2005Q3

REPORT INFORMATION
  Report Type: 
  Country: None (occurrence: None)
  Receive Date: 20050812
  Receipt Date: 20050614
  Transmission Date: 20060218
  Serious: Yes (Disabling)
  Sender: FDA-Public Use
  Company Number: US-MERCK-0506USA02101

PATIENT
  Age: 82 Year
  Sex: Male
  Weight: 78 kg

DRUGS (3)
  1. ZOCOR [Suspect]
     Indication: BLOOD CHOLESTEROL INCREASED
     Route: 048
     Dates: start: 20040924, end: 20041027
  2. ZOCOR [Suspect]
     Indication: HYPERLIPIDAEMIA
     Route: 048
     Dates: start: 20040924, end: 20041027
  3. ASPIRIN [Concomitant]
     Route: 065

REACTIONS (4)
  - AGEUSIA [None]
  - ARTHRALGIA [None]
  - HYPOSMIA [None]
  - MUSCLE SPASMS [None]
